FAERS Safety Report 20440462 (Version 1)
Quarter: 2022Q1

REPORT INFORMATION
  Report Type: Spontaneous
  Country: US (occurrence: None)
  Receive Date: 20220207
  Receipt Date: 20220207
  Transmission Date: 20220423
  Serious: No
  Sender: FDA-Public Use
  Company Number: None

PATIENT
  Age: 63 Year
  Sex: Male
  Weight: 59 kg

DRUGS (2)
  1. AMIODARONE [Suspect]
     Active Substance: AMIODARONE
     Indication: Cardiovascular disorder
     Dosage: FREQUENCY : TWICE A DAY;?
     Route: 048
     Dates: end: 20211102
  2. AMIODARONE [Suspect]
     Active Substance: AMIODARONE
     Indication: Surgery

REACTIONS (3)
  - Hepatic enzyme increased [None]
  - Jaundice [None]
  - Hepatic enzyme abnormal [None]

NARRATIVE: CASE EVENT DATE: 20211109
